FAERS Safety Report 4960540-3 (Version None)
Quarter: 2006Q1

REPORT INFORMATION
  Report Type: 
  Country: None (occurrence: None)
  Receive Date: 20060331
  Receipt Date: 20060331
  Transmission Date: 20060701
  Serious: Yes (Death, Life-Threatening, Hospitalization)
  Sender: FDA-Public Use
  Company Number: None

PATIENT
  Age: 69 Year
  Sex: Male
  Weight: 105 kg

DRUGS (10)
  1. WARFARIN SODIUM [Suspect]
     Indication: CEREBROVASCULAR ACCIDENT
     Dosage: 7.5 MG   QD  PO
     Route: 048
  2. AMITRIPTYLINE HCL [Concomitant]
  3. RANITIDINE [Concomitant]
  4. NTG SL [Concomitant]
  5. ISOSORBIDE DINITRATE [Concomitant]
  6. FOSINOPRIL [Concomitant]
  7. SIMVASTATIN [Concomitant]
  8. FELODIPINE [Concomitant]
  9. ATENOLOL [Concomitant]
  10. FLUNISOLIDE [Concomitant]

REACTIONS (12)
  - APHASIA [None]
  - CARDIO-RESPIRATORY ARREST [None]
  - FALL [None]
  - HEADACHE [None]
  - HEMIPARESIS [None]
  - INTERNATIONAL NORMALISED RATIO INCREASED [None]
  - LOSS OF CONSCIOUSNESS [None]
  - PARALYSIS [None]
  - POST PROCEDURAL COMPLICATION [None]
  - PUPIL FIXED [None]
  - RESPIRATORY DISTRESS [None]
  - SUBDURAL HAEMATOMA [None]
